FAERS Safety Report 7971368-4 (Version None)
Quarter: 2011Q4

REPORT INFORMATION
  Report Type: 
  Country: None (occurrence: None)
  Receive Date: 20111123
  Receipt Date: 20110715
  Transmission Date: 20120403
  Serious: Yes (Death)
  Sender: FDA-Public Use
  Company Number: 1000021876

PATIENT
  Age: 51 Year
  Sex: Male
  Weight: 65.77 kg

DRUGS (9)
  1. LIPITOR 9ATORVASTATIN CALCIUM) [Concomitant]
  2. NORVASC [Concomitant]
  3. AZITHROMYCIN [Concomitant]
  4. METOPROLOL ER (METORPOLOL) [Concomitant]
  5. MAXZIDE [Concomitant]
  6. ALBUTEROL [Concomitant]
  7. ACETAMINOPHEN AND HYDROCODONE BITARTRATE [Concomitant]
  8. DALIRESP [Suspect]
     Indication: CHRONIC OBSTRUCTIVE PULMONARY DISEASE
     Dosage: 500 MCG (500 MCG, 1 IN 1 D), ORAL
     Route: 048
     Dates: start: 20110624, end: 20110628
  9. PHENYLEPHRINE HCL/CHLORPHENIRAMINE MALEATE ORAL [Concomitant]

REACTIONS (1)
  - DEATH [None]
